FAERS Safety Report 6783837-3 (Version None)
Quarter: 2010Q2

REPORT INFORMATION
  Report Type: 
  Country: None (occurrence: None)
  Receive Date: 20100622
  Receipt Date: 20100325
  Transmission Date: 20101027
  Serious: Yes (Death, Hospitalization, Other)
  Sender: FDA-Public Use
  Company Number: JP-SANOFI-AVENTIS-2010SA017284

PATIENT
  Age: 71 Year
  Sex: Female

DRUGS (9)
  1. OXALIPLATIN [Suspect]
     Indication: RECTAL CANCER RECURRENT
     Route: 041
     Dates: start: 20081112, end: 20081112
  2. OXALIPLATIN [Suspect]
     Route: 041
     Dates: start: 20090512, end: 20090512
  3. BEVACIZUMAB [Suspect]
     Indication: LARGE INTESTINE CARCINOMA
     Route: 041
     Dates: start: 20081112, end: 20091013
  4. CALCIUM LEVOFOLINATE [Suspect]
     Indication: RECTAL CANCER RECURRENT
     Route: 041
     Dates: start: 20081112, end: 20091013
  5. FLUOROURACIL [Suspect]
     Indication: RECTAL CANCER RECURRENT
     Route: 041
     Dates: start: 20081112, end: 20091013
  6. ERBITUX [Suspect]
     Indication: RECTAL CANCER RECURRENT
     Route: 041
     Dates: start: 20091201, end: 20091215
  7. IRINOTECAN HYDROCHLORIDE [Suspect]
     Indication: RECTAL CANCER RECURRENT
     Route: 041
     Dates: start: 20091201, end: 20091201
  8. DEXAMETHASONE SODIUM PHOSPHATE [Concomitant]
     Dates: start: 20091112, end: 20091201
  9. GRANISETRON [Concomitant]
     Dates: start: 20081112, end: 20091201

REACTIONS (6)
  - ENTEROVESICAL FISTULA [None]
  - GASTROINTESTINAL HAEMORRHAGE [None]
  - HYPERTENSION [None]
  - RESPIRATORY FAILURE [None]
  - SEPSIS [None]
  - URINARY TRACT INFECTION [None]
